FAERS Safety Report 20268435 (Version 2)
Quarter: 2023Q2

REPORT INFORMATION
  Report Type: Spontaneous
  Country: US (occurrence: US)
  Receive Date: 20211231
  Receipt Date: 20230517
  Transmission Date: 20230721
  Serious: Yes (Other)
  Sender: FDA-Public Use
  Company Number: US-COOPERSURGICAL, INC.-US-2021CPS003893

PATIENT
  Sex: Female

DRUGS (1)
  1. PARAGARD T 380A [Suspect]
     Active Substance: COPPER
     Indication: Contraception
     Dosage: UNK
     Route: 015
     Dates: start: 201802, end: 20200115

REACTIONS (16)
  - Injury associated with device [Unknown]
  - Deformity [Unknown]
  - Intestinal perforation [Recovered/Resolved]
  - Colectomy [Unknown]
  - Abortion [Recovered/Resolved]
  - Pregnancy with contraceptive device [Recovered/Resolved]
  - Uterine perforation [Recovered/Resolved]
  - Device breakage [Recovered/Resolved]
  - Complication of device removal [Recovered/Resolved]
  - Foreign body in reproductive tract [Recovered/Resolved]
  - Device dislocation [Recovered/Resolved]
  - Anxiety [Unknown]
  - Pain [Unknown]
  - Drug ineffective [Unknown]
  - Abdominal pain [Unknown]
  - Pelvic pain [Unknown]

NARRATIVE: CASE EVENT DATE: 20190801
